FAERS Safety Report 14823447 (Version 4)
Quarter: 2018Q4

REPORT INFORMATION
  Report Type: Spontaneous
  Country: TW (occurrence: TW)
  Receive Date: 20180427
  Receipt Date: 20181207
  Transmission Date: 20190204
  Serious: Yes (Other)
  Sender: FDA-Public Use
  Company Number: TW-AMGEN-TWNSP2018056781

PATIENT
  Age: 65 Year
  Sex: Female

DRUGS (4)
  1. ENBREL [Suspect]
     Active Substance: ETANERCEPT
     Dosage: 25 MG, EVERY FOUR DAYS (Q4D)
     Route: 058
     Dates: start: 20170817, end: 20180409
  2. SALAZINE [Concomitant]
     Active Substance: SULFASALAZINE
     Dosage: 2 DF, QD
  3. ENBREL [Suspect]
     Active Substance: ETANERCEPT
     Indication: RHEUMATOID ARTHRITIS
     Dosage: 25 MG, TWICE WEEKLY (BIW)
     Route: 058
     Dates: start: 20111226
  4. ARHEUMA [Concomitant]
     Dosage: 0.5 DF, QD

REACTIONS (3)
  - Product use issue [Unknown]
  - Fibroma [Recovering/Resolving]
  - Extrapulmonary tuberculosis [Recovering/Resolving]

NARRATIVE: CASE EVENT DATE: 20170817
